FAERS Safety Report 9698666 (Version 1)
Quarter: 2013Q4

REPORT INFORMATION
  Report Type: Report from Study
  Country: CA (occurrence: CA)
  Receive Date: 20131120
  Receipt Date: 20131120
  Transmission Date: 20140711
  Serious: Yes (Hospitalization, Other)
  Sender: FDA-Public Use
  Company Number: CA-ABBVIE-13P-028-1169224-00

PATIENT
  Sex: Male

DRUGS (1)
  1. LUPRON DEPOT [Suspect]
     Indication: PRODUCT USED FOR UNKNOWN INDICATION

REACTIONS (5)
  - Prostate cancer [Not Recovered/Not Resolved]
  - Metastases to liver [Unknown]
  - Biliary neoplasm [Unknown]
  - Malignant peritoneal neoplasm [Unknown]
  - Impaired self-care [Unknown]
